FAERS Safety Report 7556543-5 (Version None)
Quarter: 2011Q2

REPORT INFORMATION
  Report Type: 
  Country: None (occurrence: None)
  Receive Date: 20110616
  Receipt Date: 20110616
  Transmission Date: 20111010
  Serious: No
  Sender: FDA-Public Use
  Company Number: None

PATIENT
  Age: 56 Year
  Sex: Female

DRUGS (2)
  1. XELODA [Suspect]
     Dates: start: 20100210, end: 20100317
  2. LAPATINIB [Suspect]
     Dates: start: 20100210, end: 20100310

REACTIONS (9)
  - GAMMA-GLUTAMYLTRANSFERASE INCREASED [None]
  - WEIGHT DECREASED [None]
  - BLOOD ALKALINE PHOSPHATASE INCREASED [None]
  - CONVULSION [None]
  - JAUNDICE [None]
  - ALANINE AMINOTRANSFERASE INCREASED [None]
  - CHOLESTASIS [None]
  - LIVER INJURY [None]
  - BIOPSY LIVER ABNORMAL [None]
